FAERS Safety Report 18390189 (Version 2)
Quarter: 2021Q3

REPORT INFORMATION
  Report Type: Spontaneous
  Country: US (occurrence: US)
  Receive Date: 20201016
  Receipt Date: 20210729
  Transmission Date: 20211014
  Serious: Yes (Death)
  Sender: FDA-Public Use
  Company Number: US-ROCHE-2697253

PATIENT
  Age: 80 Year
  Sex: Female

DRUGS (2)
  1. ACTIVASE [Suspect]
     Active Substance: ALTEPLASE
  2. ACTIVASE [Suspect]
     Active Substance: ALTEPLASE
     Indication: PULMONARY EMBOLISM
     Dosage: ONGOING NO?STRENGTH: 100 MG
     Route: 042
     Dates: start: 20200128

REACTIONS (2)
  - Product quality issue [Unknown]
  - Death [Fatal]

NARRATIVE: CASE EVENT DATE: 20200128
